FAERS Safety Report 7289195-2 (Version None)
Quarter: 2011Q1

REPORT INFORMATION
  Report Type: 
  Country: None (occurrence: None)
  Receive Date: 20110211
  Receipt Date: 20100830
  Transmission Date: 20110831
  Serious: Yes (Hospitalization)
  Sender: FDA-Public Use
  Company Number: PL-JNJFOC-20110107516

PATIENT
  Sex: Female
  Weight: 59.5 kg

DRUGS (10)
  1. GOLIMUMAB [Suspect]
     Route: 042
  2. PROTONIX [Concomitant]
     Indication: GASTROINTESTINAL DISORDER THERAPY
     Route: 048
  3. FOLIC ACID [Concomitant]
     Indication: VITAMIN SUPPLEMENTATION
     Route: 048
  4. GOLIMUMAB [Suspect]
     Indication: RHEUMATOID ARTHRITIS
     Route: 042
  5. CALCIUM [Concomitant]
     Indication: NUTRITIONAL SUPPORT
     Route: 048
  6. METYPRED [Concomitant]
     Indication: RHEUMATOID ARTHRITIS
     Route: 048
  7. METOCARD [Concomitant]
     Indication: HYPERTENSION
     Route: 048
  8. VEROSPIRON [Concomitant]
     Indication: HYPERTENSION
     Route: 048
  9. NITRENDYPINA [Concomitant]
     Indication: HYPERTENSION
     Route: 048
  10. BONIVA [Concomitant]
     Indication: OSTEOPOROSIS
     Route: 048

REACTIONS (1)
  - RASH [None]
